FAERS Safety Report 4944540-5 (Version None)
Quarter: 2006Q1

REPORT INFORMATION
  Report Type: 
  Country: None (occurrence: None)
  Receive Date: 20060315
  Receipt Date: 20060207
  Transmission Date: 20060701
  Serious: Yes (Other)
  Sender: FDA-Public Use
  Company Number: PHFR2006GB00792

PATIENT
  Age: 34 Year
  Sex: Female
  Weight: 62 kg

DRUGS (4)
  1. TEGRETOL [Suspect]
     Indication: AFFECTIVE DISORDER
     Dosage: 200 MG/DAY
     Route: 048
     Dates: start: 19950101
  2. PROPRANOLOL [Concomitant]
     Indication: ANXIETY
     Dosage: 80 MG/DAY
     Route: 048
     Dates: start: 20030101
  3. OLANZAPINE [Concomitant]
     Indication: AGITATION
     Dosage: 5 MG/DAY
     Route: 048
     Dates: start: 19950101
  4. ZOPICLONE [Concomitant]
     Indication: SLEEP DISORDER
     Dosage: 7.5 MG/DAY
     Route: 048
     Dates: start: 20040101

REACTIONS (2)
  - TINNITUS [None]
  - WEIGHT INCREASED [None]
